FAERS Safety Report 12556843 (Version 1)
Quarter: 2016Q3

REPORT INFORMATION
  Report Type: Spontaneous
  Country: US (occurrence: US)
  Receive Date: 20160714
  Receipt Date: 20160714
  Transmission Date: 20161109
  Serious: No
  Sender: FDA-Public Use
  Company Number: US-SA-2015SA215333

PATIENT
  Age: 71 Year
  Sex: Female
  Weight: 80.28 kg

DRUGS (10)
  1. TIROSINT [Suspect]
     Active Substance: LEVOTHYROXINE SODIUM
     Indication: BASEDOW^S DISEASE
     Dosage: FORM IS GEL CAPSULE
     Route: 048
     Dates: start: 201208, end: 201505
  2. TIROSINT [Suspect]
     Active Substance: LEVOTHYROXINE SODIUM
     Indication: BASEDOW^S DISEASE
     Dosage: FORM IS GEL CAPSULE
     Route: 048
     Dates: start: 201507
  3. TIROSINT [Suspect]
     Active Substance: LEVOTHYROXINE SODIUM
     Indication: RADIOACTIVE IODINE THERAPY
     Dosage: FORM IS GEL CAPSULE
     Route: 048
     Dates: start: 201507
  4. TIROSINT [Suspect]
     Active Substance: LEVOTHYROXINE SODIUM
     Indication: HYPOTHYROIDISM
     Dosage: FORM IS GEL CAPSULE
     Route: 048
     Dates: start: 201507
  5. TIROSINT [Suspect]
     Active Substance: LEVOTHYROXINE SODIUM
     Indication: HYPOTHYROIDISM
     Dosage: FORM IS GEL CAPSULE
     Route: 048
     Dates: start: 201505, end: 201507
  6. TIROSINT [Suspect]
     Active Substance: LEVOTHYROXINE SODIUM
     Indication: HYPOTHYROIDISM
     Dosage: FORM IS GEL CAPSULE
     Route: 048
     Dates: start: 201208, end: 201505
  7. TIROSINT [Suspect]
     Active Substance: LEVOTHYROXINE SODIUM
     Indication: RADIOACTIVE IODINE THERAPY
     Dosage: FORM IS GEL CAPSULE
     Route: 048
     Dates: start: 201505, end: 201507
  8. TIROSINT [Suspect]
     Active Substance: LEVOTHYROXINE SODIUM
     Indication: RADIOACTIVE IODINE THERAPY
     Dosage: FORM IS GEL CAPSULE
     Route: 048
     Dates: start: 201208, end: 201505
  9. TIROSINT [Suspect]
     Active Substance: LEVOTHYROXINE SODIUM
     Indication: BASEDOW^S DISEASE
     Dosage: FORM IS GEL CAPSULE
     Route: 048
     Dates: start: 201505, end: 201507
  10. AMARYL [Suspect]
     Active Substance: GLIMEPIRIDE
     Indication: DIABETES MELLITUS
     Route: 065
     Dates: start: 201412, end: 20151014

REACTIONS (7)
  - Platelet count decreased [Unknown]
  - Rash [Unknown]
  - Onychoclasis [Unknown]
  - Lichen planus [Unknown]
  - Condition aggravated [Unknown]
  - Blister [Unknown]
  - Onychomadesis [Unknown]

NARRATIVE: CASE EVENT DATE: 201509
